FAERS Safety Report 6006144-5 (Version None)
Quarter: 2008Q4

REPORT INFORMATION
  Report Type: 
  Country: None (occurrence: None)
  Receive Date: 20081217
  Receipt Date: 20080620
  Transmission Date: 20090506
  Serious: No
  Sender: FDA-Public Use
  Company Number: US-BAUSCH-2008BL002757

PATIENT
  Age: 81 Year
  Sex: Female

DRUGS (10)
  1. ZYLET [Suspect]
     Indication: BLEPHARITIS
     Route: 047
     Dates: start: 20080613, end: 20080617
  2. ZYLET [Suspect]
     Indication: HORDEOLUM
     Route: 047
     Dates: start: 20080613, end: 20080617
  3. ZYLET [Suspect]
     Route: 047
     Dates: start: 20080618
  4. ZYLET [Suspect]
     Route: 047
     Dates: start: 20080618
  5. NORVASC [Concomitant]
     Indication: HYPERTENSION
     Dates: start: 20071101
  6. XANAX /USA/ [Concomitant]
     Indication: DEPRESSION
  7. ASPIRIN [Concomitant]
  8. POTASSIUM CHLORIDE [Concomitant]
  9. VITAMIN D [Concomitant]
     Indication: THYROID DISORDER
  10. VITAMIN B-12 [Concomitant]

REACTIONS (1)
  - ABDOMINAL PAIN UPPER [None]
